FAERS Safety Report 11378132 (Version 3)
Quarter: 2015Q3

REPORT INFORMATION
  Report Type: Spontaneous
  Country: US (occurrence: US)
  Receive Date: 20150811
  Receipt Date: 20150903
  Transmission Date: 20151125
  Serious: No
  Sender: FDA-Public Use
  Company Number: US-ELI_LILLY_AND_COMPANY-US201203007744

PATIENT
  Sex: Male

DRUGS (3)
  1. SAW PALMETTO [Concomitant]
     Active Substance: SAW PALMETTO
     Indication: BENIGN PROSTATIC HYPERPLASIA
  2. CYMBALTA [Suspect]
     Active Substance: DULOXETINE HYDROCHLORIDE
  3. CIALIS [Suspect]
     Active Substance: TADALAFIL

REACTIONS (2)
  - Urinary hesitation [Unknown]
  - Feeling abnormal [Unknown]
